FAERS Safety Report 9645297 (Version 2)
Quarter: 2013Q4

REPORT INFORMATION
  Report Type: Spontaneous
  Country: US (occurrence: US)
  Receive Date: 20131025
  Receipt Date: 20131209
  Transmission Date: 20140711
  Serious: Yes (Other)
  Sender: FDA-Public Use
  Company Number: US-FRI-1000050488

PATIENT
  Age: 83 Year
  Sex: Female
  Weight: 89.91 kg

DRUGS (6)
  1. ARMOUR THYROID [Suspect]
     Indication: HYPOTHYROIDISM
     Dosage: 90 MG
     Route: 048
     Dates: start: 201301, end: 201309
  2. ARMOUR THYROID [Suspect]
     Dosage: 60 MG
     Route: 048
     Dates: start: 201309
  3. AMLODIPINE [Concomitant]
     Indication: HYPERTENSION
  4. BENAZEPRIL [Concomitant]
     Indication: HYPERTENSION
  5. ASPIRIN [Concomitant]
     Dosage: 81 MG
  6. NORCO [Concomitant]

REACTIONS (1)
  - Weight decreased [Recovered/Resolved]
